FAERS Safety Report 19977761 (Version 1)
Quarter: 2021Q4

REPORT INFORMATION
  Report Type: Spontaneous
  Country: CA (occurrence: CA)
  Receive Date: 20211020
  Receipt Date: 20211020
  Transmission Date: 20220304
  Serious: Yes (Other)
  Sender: FDA-Public Use
  Company Number: CA-ANIPHARMA-2021-CA-001579

PATIENT
  Age: 60 Year
  Sex: Female

DRUGS (32)
  1. CANDESARTAN CILEXETIL [Suspect]
     Active Substance: CANDESARTAN CILEXETIL
     Indication: Migraine
     Route: 065
  2. LAMOTRIGINE [Suspect]
     Active Substance: LAMOTRIGINE
     Route: 065
  3. METOCLOPRAMIDE HYDROCHLORIDE [Suspect]
     Active Substance: METOCLOPRAMIDE HYDROCHLORIDE
     Route: 065
  4. NAPROXEN [Suspect]
     Active Substance: NAPROXEN
     Route: 065
  5. NARATRIPTAN HYDROCHLORIDE [Suspect]
     Active Substance: NARATRIPTAN HYDROCHLORIDE
     Route: 065
  6. NIFEDIPINE [Suspect]
     Active Substance: NIFEDIPINE
     Route: 065
  7. NORTRIPTYLINE [Suspect]
     Active Substance: NORTRIPTYLINE
     Route: 065
  8. PIZOTYLINE MALEATE [Suspect]
     Active Substance: PIZOTYLINE MALEATE
     Route: 065
  9. PREDNISONE [Suspect]
     Active Substance: PREDNISONE
     Route: 065
  10. PROCHLORPERAZINE [Suspect]
     Active Substance: PROCHLORPERAZINE
     Route: 065
  11. RIZATRIPTAN BENZOATE [Suspect]
     Active Substance: RIZATRIPTAN BENZOATE
     Route: 065
  12. ATENOLOL [Suspect]
     Active Substance: ATENOLOL
     Route: 048
  13. TOPIRAMATE [Suspect]
     Active Substance: TOPIRAMATE
     Dosage: 75 MG UNK
     Route: 065
  14. TRAZODONE HYDROCHLORIDE [Suspect]
     Active Substance: TRAZODONE HYDROCHLORIDE
     Route: 065
  15. DIVALPROEX SODIUM [Suspect]
     Active Substance: DIVALPROEX SODIUM
     Route: 065
  16. VENLAFAXINE HYDROCHLORIDE [Suspect]
     Active Substance: VENLAFAXINE HYDROCHLORIDE
     Route: 065
  17. VERAPAMIL HYDROCHLORIDE [Suspect]
     Active Substance: VERAPAMIL HYDROCHLORIDE
     Route: 065
  18. ZOPICLONE [Suspect]
     Active Substance: ZOPICLONE
     Route: 065
  19. ALLOPURINOL [Concomitant]
     Active Substance: ALLOPURINOL
     Dosage: 20 MG UNK
     Route: 065
  20. BOTULINUM TOXIN TYPE A [Concomitant]
     Active Substance: BOTULINUM TOXIN TYPE A
     Route: 065
  21. FROVATRIPTAN SUCCINATE [Concomitant]
     Active Substance: FROVATRIPTAN SUCCINATE
     Route: 065
  22. GRAVOL [Concomitant]
     Active Substance: DIMENHYDRINATE
     Route: 065
  23. PROPRANOLOL HYDROCHLORIDE [Suspect]
     Active Substance: PROPRANOLOL HYDROCHLORIDE
     Dosage: 40 MG Q12H
     Route: 065
  24. VALPROATE SODIUM [Concomitant]
     Active Substance: VALPROATE SODIUM
     Route: 065
  25. TENORMIN [Concomitant]
     Active Substance: ATENOLOL
     Route: 065
  26. TYLENOL [Interacting]
     Active Substance: ACETAMINOPHEN
     Route: 065
  27. AMLODIPINE BESYLATE [Suspect]
     Active Substance: AMLODIPINE BESYLATE
     Route: 065
  28. CLONIDINE [Suspect]
     Active Substance: CLONIDINE
     Route: 065
  29. CORGARD [Suspect]
     Active Substance: NADOLOL
     Route: 065
  30. DIHYDROERGOTAMINE MESYLATE [Suspect]
     Active Substance: DIHYDROERGOTAMINE MESYLATE
     Route: 065
  31. ERENUMAB [Suspect]
     Active Substance: ERENUMAB
     Route: 065
  32. GABAPENTIN [Suspect]
     Active Substance: GABAPENTIN
     Route: 065

REACTIONS (15)
  - Abdominal pain [Unknown]
  - Diarrhoea [Unknown]
  - Nausea [Unknown]
  - Dyspepsia [Unknown]
  - Treatment failure [Unknown]
  - Drug ineffective [Unknown]
  - Drug ineffective for unapproved indication [Unknown]
  - Weight decreased [Unknown]
  - Paradoxical drug reaction [Unknown]
  - Neovascularisation [Unknown]
  - Migraine [Unknown]
  - Extrapyramidal disorder [Unknown]
  - Anuria [Unknown]
  - Cough [Unknown]
  - Dyspnoea [Unknown]
